FAERS Safety Report 10584482 (Version 1)
Quarter: 2014Q4

REPORT INFORMATION
  Report Type: Spontaneous
  Country: US (occurrence: US)
  Receive Date: 20141114
  Receipt Date: 20141114
  Transmission Date: 20150529
  Serious: No
  Sender: FDA-Public Use
  Company Number: US-ENDO PHARMACEUTICALS INC.-VANT20140019

PATIENT
  Age: 77 Year
  Sex: Male

DRUGS (2)
  1. VANTAS [Suspect]
     Active Substance: HISTRELIN ACETATE
     Route: 058
     Dates: start: 20140416, end: 20140513
  2. VANTAS [Suspect]
     Active Substance: HISTRELIN ACETATE
     Indication: PROSTATE CANCER
     Route: 058
     Dates: end: 20140416

REACTIONS (2)
  - Device extrusion [Recovered/Resolved]
  - Wound [Not Recovered/Not Resolved]

NARRATIVE: CASE EVENT DATE: 2014
